FAERS Safety Report 26133121 (Version 1)
Quarter: 2025Q4

REPORT INFORMATION
  Report Type: Spontaneous
  Country: CN (occurrence: CN)
  Receive Date: 20251209
  Receipt Date: 20251209
  Transmission Date: 20260117
  Serious: Yes (Death)
  Sender: BOEHRINGER INGELHEIM
  Company Number: CN-BoehringerIngelheim-2025-BI-112605

PATIENT
  Age: 57 Year
  Sex: Male

DRUGS (4)
  1. NINTEDANIB [Suspect]
     Active Substance: NINTEDANIB
     Indication: K-ras gene mutation
  2. NINTEDANIB [Suspect]
     Active Substance: NINTEDANIB
     Indication: Ductal adenocarcinoma of pancreas
  3. TRAMETINIB [Concomitant]
     Active Substance: TRAMETINIB
     Indication: K-ras gene mutation
  4. TRAMETINIB [Concomitant]
     Active Substance: TRAMETINIB
     Indication: Ductal adenocarcinoma of pancreas

REACTIONS (1)
  - Gastrointestinal haemorrhage [Fatal]
